FAERS Safety Report 5621269-1 (Version None)
Quarter: 2008Q1

REPORT INFORMATION
  Report Type: 
  Country: None (occurrence: None)
  Receive Date: 20080211
  Receipt Date: 20080131
  Transmission Date: 20080703
  Serious: Yes (Other)
  Sender: FDA-Public Use
  Company Number: US-JNJFOC-20080106498

PATIENT
  Sex: Female
  Weight: 81.65 kg

DRUGS (13)
  1. REMICADE [Suspect]
     Route: 042
  2. REMICADE [Suspect]
     Route: 042
  3. REMICADE [Suspect]
     Indication: RHEUMATOID ARTHRITIS
     Route: 042
  4. TRIAN. [Concomitant]
     Indication: DIURETIC THERAPY
     Dosage: 37.5/25
  5. METHOTREXATE [Concomitant]
     Indication: RHEUMATOID ARTHRITIS
  6. PREDNISONE TAB [Concomitant]
     Indication: RHEUMATOID ARTHRITIS
  7. LISINOPRIL [Concomitant]
     Indication: BLOOD PRESSURE
  8. ATENOLOL [Concomitant]
     Indication: BLOOD PRESSURE
  9. FOLIC ACID [Concomitant]
     Indication: FUNGAL INFECTION
  10. LUNESTA [Concomitant]
     Indication: HYPERSOMNIA
  11. LYRICA [Concomitant]
     Indication: NERVE INJURY
     Dosage: 75 MG WHEN RECEIVED
  12. VICADIN ES [Concomitant]
     Indication: PAIN
     Dosage: 4 NEEDED
  13. BENADRYL [Concomitant]
     Indication: PREMEDICATION

REACTIONS (3)
  - BACK PAIN [None]
  - INFUSION RELATED REACTION [None]
  - INTERVERTEBRAL DISC PROTRUSION [None]
